FAERS Safety Report 24604670 (Version 1)
Quarter: 2024Q4

REPORT INFORMATION
  Report Type: Spontaneous
  Country: US (occurrence: US)
  Receive Date: 20241111
  Receipt Date: 20241111
  Transmission Date: 20250115
  Serious: No
  Sender: BAYER HEALTHCARE PHARMACEUTICALS INC.
  Company Number: US-BAYER-2024A158163

PATIENT
  Age: 68 Year
  Sex: Female

DRUGS (9)
  1. STIVARGA [Suspect]
     Active Substance: REGORAFENIB MONOHYDRATE
     Indication: Product used for unknown indication
     Dosage: UNK
     Dates: start: 20241025
  2. CABOMETYX [Suspect]
     Active Substance: CABOZANTINIB S-MALATE
     Indication: Renal cancer
     Dosage: 40 MG, QD
     Route: 048
     Dates: start: 20240624
  3. CABOMETYX [Suspect]
     Active Substance: CABOZANTINIB S-MALATE
     Indication: Metastasis
  4. LENVIMA [Suspect]
     Active Substance: LENVATINIB
     Indication: Renal cancer
     Dosage: 12 MG, QD
     Route: 048
     Dates: start: 20231227
  5. ASPIRIN [Concomitant]
     Active Substance: ASPIRIN
  6. IMODIUM A-D [Concomitant]
     Active Substance: LOPERAMIDE HYDROCHLORIDE
     Dosage: UNK
  7. LISINOPRIL [Concomitant]
     Active Substance: LISINOPRIL
  8. TACROLIMUS [Concomitant]
     Active Substance: TACROLIMUS
     Dosage: UNK
  9. URSODIOL [Concomitant]
     Active Substance: URSODIOL
     Dosage: UNK

REACTIONS (2)
  - Abdominal pain upper [None]
  - Pain [None]

NARRATIVE: CASE EVENT DATE: 20241025
